FAERS Safety Report 8935236 (Version 1)
Quarter: 2012Q4

REPORT INFORMATION
  Report Type: Report from Study
  Country: JP (occurrence: JP)
  Receive Date: 20121129
  Receipt Date: 20121129
  Transmission Date: 20130627
  Serious: Yes (Other)
  Sender: FDA-Public Use
  Company Number: JP-009507513-2012SP007737

PATIENT
  Age: 49 Year
  Sex: Male
  Weight: 65 kg

DRUGS (14)
  1. PEGINTERFERON ALFA-2B [Suspect]
     Indication: CHRONIC HEPATITIS C
     Dosage: 1.5 ?g/kg, QW
     Route: 058
     Dates: start: 20120112, end: 20120112
  2. PEGINTERFERON ALFA-2B [Suspect]
     Dosage: 0.75 ?g/kg, QW
     Route: 058
     Dates: start: 20120119, end: 20120125
  3. PEGINTERFERON ALFA-2B [Suspect]
     Dosage: 0.75 ?g/kg, QW
     Route: 058
     Dates: start: 20120207, end: 20120207
  4. PEGINTERFERON ALFA-2B [Suspect]
     Dosage: 0.6 ?g/kg, QW
     Route: 058
     Dates: start: 20120214, end: 20120228
  5. PEGINTERFERON ALFA-2B [Suspect]
     Dosage: 0.75 ?g/kg, QW
     Route: 058
     Dates: start: 20120313, end: 20120410
  6. PEGINTERFERON ALFA-2B [Suspect]
     Dosage: 1.3 ?g/kg, QW
     Route: 058
     Dates: start: 20120417
  7. REBETOL [Suspect]
     Indication: CHRONIC HEPATITIS C
     Dosage: 800 mg, QD
     Route: 048
     Dates: start: 20120112, end: 20120131
  8. REBETOL [Suspect]
     Dosage: 800 mg, QD
     Route: 048
     Dates: start: 20120207, end: 20120228
  9. REBETOL [Suspect]
     Dosage: 800 mg, QD
     Route: 048
     Dates: start: 20120313
  10. TELAVIC [Suspect]
     Indication: CHRONIC HEPATITIS C
     Dosage: 2250 mg, QD
     Route: 048
     Dates: start: 20120112, end: 20120131
  11. TELAVIC [Suspect]
     Dosage: 1500 mg, QD
     Route: 048
     Dates: start: 20120207, end: 20120228
  12. TELAVIC [Suspect]
     Dosage: 750 mg, QD
     Route: 048
     Dates: start: 20120313, end: 20120326
  13. TELAVIC [Suspect]
     Dosage: 1000 mg, QD
     Route: 048
     Dates: start: 20120327
  14. LOXOPROFEN SODIUM [Concomitant]
     Indication: PYREXIA
     Dosage: 60 mg, PRN
     Route: 048

REACTIONS (2)
  - Platelet count decreased [Recovering/Resolving]
  - Platelet count decreased [Recovered/Resolved]
